FAERS Safety Report 9236702 (Version 3)
Quarter: 2019Q4

REPORT INFORMATION
  Report Type: Report from Study
  Country: DE (occurrence: DE)
  Receive Date: 20130417
  Receipt Date: 20191106
  Transmission Date: 20200122
  Serious: Yes (Death)
  Sender: FDA-Public Use
  Company Number: DE-ROCHE-1200431

PATIENT
  Age: 64 Year
  Sex: Female
  Weight: 40 kg

DRUGS (2)
  1. BEVACIZUMAB. [Suspect]
     Active Substance: BEVACIZUMAB
     Indication: COLON CANCER
     Dosage: LAST DOSE PRIOR TO SAE ON 12/FEB/2013
     Route: 042
     Dates: start: 20110722, end: 20130212
  2. CAPECITABINE. [Suspect]
     Active Substance: CAPECITABINE
     Indication: COLON CANCER
     Dosage: LAST DOSE PRIOR TO SAE ON 12/FEB/2013
     Route: 048
     Dates: start: 20110722, end: 20130212

REACTIONS (1)
  - Death [Fatal]

NARRATIVE: CASE EVENT DATE: 20130306
